FAERS Safety Report 25809314 (Version 2)
Quarter: 2025Q4

REPORT INFORMATION
  Report Type: Spontaneous
  Country: US (occurrence: US)
  Receive Date: 20250916
  Receipt Date: 20251125
  Transmission Date: 20260118
  Serious: No
  Sender: SANOFI AVENTIS
  Company Number: US-SA-2025SA275390

PATIENT
  Sex: Male

DRUGS (2)
  1. ADMELOG [Suspect]
     Active Substance: INSULIN LISPRO
     Dosage: (ADMINISTERS HIMSELF THE MEDICATION WHEN HE GETS UP AND WHEN HE GOES TO BED AT NIGHT), BID
     Route: 065
  2. ADMELOG [Suspect]
     Active Substance: INSULIN LISPRO
     Dosage: 35 UNITS IN THE MORNING AND 25 UNITS AT NIGHT
     Route: 065

REACTIONS (1)
  - Off label use [Unknown]
